FAERS Safety Report 21900370 (Version 1)
Quarter: 2023Q1

REPORT INFORMATION
  Report Type: Spontaneous
  Country: US (occurrence: US)
  Receive Date: 20230123
  Receipt Date: 20230123
  Transmission Date: 20230417
  Serious: No
  Sender: FDA-Public Use
  Company Number: US-NOVOPROD-966068

PATIENT
  Sex: Female

DRUGS (1)
  1. OZEMPIC [Suspect]
     Active Substance: SEMAGLUTIDE
     Indication: Product used for unknown indication
     Dosage: UNK
     Route: 058

REACTIONS (5)
  - Weight increased [Not Recovered/Not Resolved]
  - Food craving [Not Recovered/Not Resolved]
  - Dizziness [Recovered/Resolved]
  - Anxiety [Recovered/Resolved]
  - Product packaging issue [Not Recovered/Not Resolved]

NARRATIVE: CASE EVENT DATE: 20220901
